FAERS Safety Report 21748628 (Version 2)
Quarter: 2023Q1

REPORT INFORMATION
  Report Type: Report from Study
  Country: CA (occurrence: CA)
  Receive Date: 20221219
  Receipt Date: 20230117
  Transmission Date: 20230418
  Serious: Yes (Other)
  Sender: FDA-Public Use
  Company Number: CA-OTSUKA-2022_054746

PATIENT
  Sex: Male

DRUGS (1)
  1. CEDAZURIDINE\DECITABINE [Suspect]
     Active Substance: CEDAZURIDINE\DECITABINE
     Indication: Myelodysplastic syndrome
     Dosage: 1 DF (35 MG DECITABINE AND 100 MG CEDAZURIDINE), QD PER 28 DAYS CYCLE
     Route: 048
     Dates: start: 20221202

REACTIONS (1)
  - Thrombocytopenia [Unknown]
